FAERS Safety Report 4451826-X (Version None)
Quarter: 2004Q3

REPORT INFORMATION
  Report Type: 
  Country: None (occurrence: None)
  Receive Date: 20040915
  Receipt Date: 20040915
  Transmission Date: 20050211
  Serious: Yes (Hospitalization)
  Sender: FDA-Public Use
  Company Number: None

PATIENT
  Age: 62 Year
  Sex: Male
  Weight: 104.3273 kg

DRUGS (12)
  1. DOXEPIN HCL [Suspect]
     Indication: SLEEP DISORDER
     Dosage: 75 MG, QHS, PO
     Route: 048
     Dates: start: 20030117, end: 20040205
  2. ATENOLOL [Suspect]
     Indication: BLOOD PRESSURE
     Dosage: 25 MG, QD, PO
     Route: 048
     Dates: start: 20030103, end: 20040101
  3. ALBUTEROL [Concomitant]
  4. ALBUTEROL/*IPRATROPIUM* INHALER [Concomitant]
  5. ASPIRIN [Concomitant]
  6. FLUTICASONE PROP [Concomitant]
  7. HYROCODONE 5/ ACETAMINOPHEN [Concomitant]
  8. LEVOFLOXACIN [Concomitant]
  9. LISINOPRIL [Concomitant]
  10. NAPROXEN [Concomitant]
  11. SIMVASTATIN [Concomitant]
  12. TEMAZEPAM [Concomitant]

REACTIONS (3)
  - BALANCE DISORDER [None]
  - SYNCOPE [None]
  - VISION BLURRED [None]
